FAERS Safety Report 22068061 (Version 2)
Quarter: 2023Q2

REPORT INFORMATION
  Report Type: Spontaneous
  Country: BE (occurrence: BE)
  Receive Date: 20230307
  Receipt Date: 20230428
  Transmission Date: 20230722
  Serious: Yes (Other)
  Sender: FDA-Public Use
  Company Number: BE-BEH-2023155959

PATIENT
  Age: 72 Year
  Sex: Male
  Weight: 86 kg

DRUGS (13)
  1. PRIVIGEN [Suspect]
     Active Substance: HUMAN IMMUNOGLOBULIN G
     Indication: Chronic inflammatory demyelinating polyradiculoneuropathy
     Dosage: 0.8 TO 1G/KG /6 WEEKS
     Route: 042
     Dates: start: 20221114, end: 20221118
  2. PRIVIGEN [Suspect]
     Active Substance: HUMAN IMMUNOGLOBULIN G
     Dosage: 0.8 TO 1G/KG /6 WEEKS
     Route: 042
     Dates: start: 20221221, end: 20221221
  3. PRIVIGEN [Suspect]
     Active Substance: HUMAN IMMUNOGLOBULIN G
     Dosage: 0.8 TO 1G/KG /6 WEEKS
     Route: 042
     Dates: start: 20230118, end: 20230118
  4. ASPIRIN [Concomitant]
     Active Substance: ASPIRIN
     Dosage: 160 MILLIGRAM, QD
  5. BISOPROLOL [Concomitant]
     Active Substance: BISOPROLOL
     Dosage: 5 MILLIGRAM, QD
  6. MOLSIDOMINE [Concomitant]
     Active Substance: MOLSIDOMINE
     Dosage: 16 MILLIGRAM, QD
  7. MINITRAN [Concomitant]
     Active Substance: NITROGLYCERIN
     Dosage: 15 MILLIGRAM, QD
  8. PANTOPRAZOLE SODIUM [Concomitant]
     Active Substance: PANTOPRAZOLE SODIUM
     Dosage: 40 MILLIGRAM, QD
  9. TAMSULOSIN [Concomitant]
     Active Substance: TAMSULOSIN
     Dosage: 0.4 MILLIGRAM, QD
  10. POLYETHYLENE GLYCOL 3350\POTASSIUM CHLORIDE\SODIUM BICARBONATE\SODIUM [Concomitant]
     Active Substance: POLYETHYLENE GLYCOL 3350\POTASSIUM CHLORIDE\SODIUM BICARBONATE\SODIUM CHLORIDE
     Dosage: 13.8 MILLIGRAM, QD
  11. PRAVASTATIN SODIUM [Concomitant]
     Active Substance: PRAVASTATIN SODIUM
     Dosage: 40 MILLIGRAM, QD
  12. EZETIMIBE [Concomitant]
     Active Substance: EZETIMIBE
     Dosage: 10 MILLIGRAM, QD
  13. CLOPIDOGREL [Concomitant]
     Active Substance: CLOPIDOGREL BISULFATE
     Dosage: 75 MILLIGRAM, QD

REACTIONS (8)
  - Angina pectoris [Recovering/Resolving]
  - Extrasystoles [Unknown]
  - Malaise [Unknown]
  - Influenza like illness [Recovering/Resolving]
  - Body temperature increased [Recovering/Resolving]
  - Chest pain [Recovering/Resolving]
  - Chest pain [Recovering/Resolving]
  - Palpitations [Unknown]

NARRATIVE: CASE EVENT DATE: 20221116
